FAERS Safety Report 9464134 (Version 1)
Quarter: 2013Q3

REPORT INFORMATION
  Report Type: Spontaneous
  Country: US (occurrence: US)
  Receive Date: 20130819
  Receipt Date: 20130819
  Transmission Date: 20140515
  Serious: Yes (Death)
  Sender: FDA-Public Use
  Company Number: US-ROXANE LABORATORIES, INC.-2013-RO-01351RO

PATIENT
  Sex: 0

DRUGS (1)
  1. CODEINE SULFATE [Suspect]
     Indication: ANALGESIC THERAPY

REACTIONS (1)
  - Death [Fatal]
